FAERS Safety Report 25328372 (Version 1)
Quarter: 2025Q2

REPORT INFORMATION
  Report Type: Spontaneous
  Country: US (occurrence: US)
  Receive Date: 20250518
  Receipt Date: 20250518
  Transmission Date: 20250716
  Serious: No
  Sender: SANOFI AVENTIS
  Company Number: US-SA-2024SA280432

PATIENT
  Age: 65 Year
  Sex: Female

DRUGS (14)
  1. DUPIXENT [Suspect]
     Active Substance: DUPILUMAB
     Indication: Dermatitis atopic
     Dosage: 300 MG, QOW
     Route: 058
     Dates: start: 20240911
  2. ALBUTEROL SULFATE [Concomitant]
     Active Substance: ALBUTEROL SULFATE
  3. ASPIRIN [Concomitant]
     Active Substance: ASPIRIN
  4. DEXAMETHASONE [Concomitant]
     Active Substance: DEXAMETHASONE
  5. DULOXETINE [Concomitant]
     Active Substance: DULOXETINE
  6. ESZOPICLONE [Concomitant]
     Active Substance: ESZOPICLONE
  7. FAMOTIDINE [Concomitant]
     Active Substance: FAMOTIDINE
  8. HYDROXYZINE HYDROCHLORIDE [Concomitant]
     Active Substance: HYDROXYZINE HYDROCHLORIDE
  9. KENALOG [Concomitant]
     Active Substance: TRIAMCINOLONE ACETONIDE
  10. MONTELUKAST [Concomitant]
     Active Substance: MONTELUKAST
  11. ONDANSETRON [Concomitant]
     Active Substance: ONDANSETRON
  12. PREDNISONE [Concomitant]
     Active Substance: PREDNISONE
  13. REPATHA [Concomitant]
     Active Substance: EVOLOCUMAB
  14. WIXELA INHUB [Concomitant]
     Active Substance: FLUTICASONE PROPIONATE\SALMETEROL XINAFOATE

REACTIONS (4)
  - Skin discomfort [Unknown]
  - Injection site pain [Unknown]
  - Rash [Unknown]
  - Drug ineffective [Unknown]
